FAERS Safety Report 11117389 (Version 1)
Quarter: 2015Q2

REPORT INFORMATION
  Report Type: Spontaneous
  Country: US (occurrence: US)
  Receive Date: 20150516
  Receipt Date: 20150516
  Transmission Date: 20150821
  Serious: No
  Sender: FDA-Public Use
  Company Number: US-009507513-1505USA002738

PATIENT
  Sex: Male

DRUGS (1)
  1. JANUVIA [Suspect]
     Active Substance: SITAGLIPTIN PHOSPHATE

REACTIONS (2)
  - Musculoskeletal pain [Unknown]
  - Arthralgia [Unknown]
